FAERS Safety Report 14485912 (Version 1)
Quarter: 2018Q1

REPORT INFORMATION
  Report Type: Spontaneous
  Country: US (occurrence: US)
  Receive Date: 20180205
  Receipt Date: 20180205
  Transmission Date: 20180509
  Serious: No
  Sender: FDA-Public Use
  Company Number: US-JNJFOC-20171115082

PATIENT
  Sex: Female
  Weight: 77.11 kg

DRUGS (2)
  1. LOTRONEX [Suspect]
     Active Substance: ALOSETRON HYDROCHLORIDE
     Indication: INTESTINAL RESECTION
     Route: 048
     Dates: start: 2004, end: 2004
  2. ULTRAM [Suspect]
     Active Substance: TRAMADOL HYDROCHLORIDE
     Indication: PRODUCT USED FOR UNKNOWN INDICATION
     Route: 065

REACTIONS (2)
  - Constipation [Recovered/Resolved]
  - Palpitations [Recovered/Resolved]
